FAERS Safety Report 5302017-1 (Version None)
Quarter: 2007Q2

REPORT INFORMATION
  Report Type: 
  Country: None (occurrence: None)
  Receive Date: 20070416
  Receipt Date: 20070416
  Transmission Date: 20071010
  Serious: Yes (Hospitalization)
  Sender: FDA-Public Use
  Company Number: None

PATIENT
  Age: 44 Year
  Sex: Female

DRUGS (2)
  1. BENAZEPRIL HYDROCHLORIDE [Suspect]
     Dosage: 40 MG   PO
     Route: 048
  2. LOSARTAN POTASSIUM [Suspect]
     Dosage: 100 MG  PO
     Route: 048

REACTIONS (1)
  - ANGIOEDEMA [None]
